FAERS Safety Report 17671988 (Version 2)
Quarter: 2020Q2

REPORT INFORMATION
  Report Type: Spontaneous
  Country: US (occurrence: US)
  Receive Date: 20200415
  Receipt Date: 20200521
  Transmission Date: 20200713
  Serious: Yes (Other)
  Sender: FDA-Public Use
  Company Number: US-BIOCODEX SA-202000304

PATIENT

DRUGS (9)
  1. FELBAMATE. [Concomitant]
     Active Substance: FELBAMATE
     Route: 065
  2. DIAZEPAM. [Concomitant]
     Active Substance: DIAZEPAM
     Indication: PRODUCT USED FOR UNKNOWN INDICATION
     Route: 065
  3. DIAZEPAM. [Concomitant]
     Active Substance: DIAZEPAM
     Route: 065
  4. MELATONIN [Concomitant]
     Active Substance: MELATONIN
     Indication: PRODUCT USED FOR UNKNOWN INDICATION
     Route: 065
  5. DIACOMIT [Suspect]
     Active Substance: STIRIPENTOL
     Dosage: UNCLEAR: 750MG PM AND 1000MG TWICE DAILY / 750MG IN THE MORNING AND 1000MG AT NOON
     Route: 048
  6. MELATONIN [Concomitant]
     Active Substance: MELATONIN
     Route: 065
  7. FELBAMATE. [Concomitant]
     Active Substance: FELBAMATE
     Indication: PRODUCT USED FOR UNKNOWN INDICATION
     Route: 065
  8. FYCOMPA [Concomitant]
     Active Substance: PERAMPANEL
     Indication: PRODUCT USED FOR UNKNOWN INDICATION
     Route: 065
  9. DIACOMIT [Suspect]
     Active Substance: STIRIPENTOL
     Indication: SEVERE MYOCLONIC EPILEPSY OF INFANCY
     Dosage: 3 CAPSULES OF 250MG.
     Route: 048
     Dates: start: 20190524

REACTIONS (4)
  - Fall [Unknown]
  - Head injury [Unknown]
  - Seizure [Unknown]
  - Product use in unapproved indication [Unknown]
